FAERS Safety Report 5034631-5 (Version None)
Quarter: 2006Q2

REPORT INFORMATION
  Report Type: 
  Country: None (occurrence: None)
  Receive Date: 20060626
  Receipt Date: 20060616
  Transmission Date: 20061013
  Serious: Yes (Life-Threatening, Hospitalization)
  Sender: FDA-Public Use
  Company Number: DE-MERCK-0606DEU00055

PATIENT
  Age: 71 Year
  Sex: Male
  Weight: 98 kg

DRUGS (11)
  1. ZOCOR [Suspect]
     Route: 048
     Dates: start: 20050201, end: 20051101
  2. ISOSORBIDE DINITRATE [Concomitant]
     Route: 048
  3. COZAAR [Concomitant]
     Route: 048
  4. AMLODIPINE BESYLATE [Concomitant]
     Route: 048
  5. MOXONIDINE [Concomitant]
     Route: 048
  6. ASPIRIN [Concomitant]
     Route: 048
  7. BISOPROLOL FUMARATE [Concomitant]
     Route: 048
  8. GLYBURIDE [Concomitant]
     Route: 048
  9. LEVOTHYROXINE SODIUM [Concomitant]
     Route: 048
  10. INSULIN, BIPHASIC ISOPHANE [INJECTION] [Concomitant]
     Route: 058
  11. FUROSEMIDE [Concomitant]
     Route: 048

REACTIONS (10)
  - ABDOMINAL PAIN [None]
  - CHOLELITHIASIS [None]
  - DIZZINESS [None]
  - DUODENITIS [None]
  - GASTRITIS [None]
  - HEPATIC STEATOSIS [None]
  - HYPERHIDROSIS [None]
  - NAUSEA [None]
  - PROSTATE EXAMINATION ABNORMAL [None]
  - RHABDOMYOLYSIS [None]
